FAERS Safety Report 6130761-5 (Version None)
Quarter: 2009Q1

REPORT INFORMATION
  Report Type: 
  Country: None (occurrence: None)
  Receive Date: 20090323
  Receipt Date: 20090304
  Transmission Date: 20090719
  Serious: Yes (Hospitalization)
  Sender: FDA-Public Use
  Company Number: 805#1#2008-00015

PATIENT
  Age: 74 Year
  Sex: Male

DRUGS (3)
  1. PROSTANDIN /00501501/ (PROSTANDIN) [Suspect]
     Indication: ARTERIOSCLEROSIS OBLITERANS
     Dosage: INTRAVENOUS DRIP
     Route: 041
     Dates: start: 20080714, end: 20080801
  2. DORNER (DORNER) [Suspect]
     Dosage: ORAL
     Route: 048
     Dates: end: 20080801
  3. LOXONIN /00890702/ (LOXONIN) (NOT SPECIFIED) [Suspect]
     Dosage: ORAL
     Route: 048
     Dates: end: 20080801

REACTIONS (2)
  - INTERSTITIAL LUNG DISEASE [None]
  - LYMPHOCYTE STIMULATION TEST POSITIVE [None]
